FAERS Safety Report 8638647 (Version 3)
Quarter: 2012Q4

REPORT INFORMATION
  Report Type: Report from Study
  Country: JP (occurrence: JP)
  Receive Date: 20120627
  Receipt Date: 20120906
  Transmission Date: 20130627
  Serious: Yes (Hospitalization)
  Sender: FDA-Public Use
  Company Number: JP-JNJFOC-20120612367

PATIENT
  Age: 69 Year
  Sex: Male
  Weight: 46 kg

DRUGS (8)
  1. STELARA [Suspect]
     Indication: PSORIATIC ARTHROPATHY
     Route: 058
     Dates: start: 20120518
  2. STELARA [Suspect]
     Indication: PSORIATIC ARTHROPATHY
     Route: 058
     Dates: start: 20120420
  3. STELARA [Suspect]
     Indication: PSORIATIC ARTHROPATHY
     Route: 058
     Dates: start: 20111111
  4. STELARA [Suspect]
     Indication: PSORIATIC ARTHROPATHY
     Route: 058
     Dates: start: 20111209
  5. PARIET [Concomitant]
     Route: 048
  6. ALLELOCK [Concomitant]
     Indication: PSORIATIC ARTHROPATHY
     Route: 048
  7. CO-DIOVAN [Concomitant]
     Route: 048
  8. NORVASC [Concomitant]
     Route: 048

REACTIONS (1)
  - Staphylococcal sepsis [Recovered/Resolved]
